FAERS Safety Report 7301265-9 (Version None)
Quarter: 2010Q4

REPORT INFORMATION
  Report Type: 
  Country: None (occurrence: None)
  Receive Date: 20101229
  Receipt Date: 20100924
  Transmission Date: 20110411
  Serious: No
  Sender: FDA-Public Use
  Company Number: 1000016558

PATIENT
  Sex: Female

DRUGS (1)
  1. BYSTOLIC [Suspect]
     Dosage: ORAL
     Route: 048

REACTIONS (1)
  - ALOPECIA [None]
